FAERS Safety Report 5162782-3 (Version None)
Quarter: 2006Q4

REPORT INFORMATION
  Report Type: 
  Country: None (occurrence: None)
  Receive Date: 20061201
  Receipt Date: 20061117
  Transmission Date: 20070319
  Serious: Yes (Other)
  Sender: FDA-Public Use
  Company Number: US-ELI_LILLY_AND_COMPANY-US200611003463

PATIENT
  Sex: Female

DRUGS (3)
  1. PROZAC [Suspect]
     Indication: DEPRESSION
     Dosage: 30 MG, UNK
     Route: 048
     Dates: start: 19900101
  2. NEXIUM [Concomitant]
  3. ALEVE [Concomitant]
     Indication: PAIN

REACTIONS (9)
  - ANAEMIA [None]
  - DYSPNOEA [None]
  - FAECES DISCOLOURED [None]
  - FOOD POISONING [None]
  - GASTRIC OPERATION [None]
  - GASTRITIS EROSIVE [None]
  - HAEMATOCHEZIA [None]
  - PAIN [None]
  - TRANSFUSION [None]
